FAERS Safety Report 9973011 (Version 2)
Quarter: 2014Q1

REPORT INFORMATION
  Report Type: Report from Study
  Country: DE (occurrence: DE)
  Receive Date: 20140306
  Receipt Date: 20140306
  Transmission Date: 20141002
  Serious: Yes (Other)
  Sender: FDA-Public Use
  Company Number: DE-PFIZER INC-2014057586

PATIENT
  Sex: Female

DRUGS (2)
  1. CISPLATIN [Suspect]
     Indication: OVARIAN CANCER RECURRENT
     Dosage: 7.5 MG/M2, CYCLIC
     Route: 033
  2. DOXORUBICIN HCL [Suspect]
     Indication: OVARIAN CANCER RECURRENT
     Dosage: 1.5 MG/M2, CYCLIC
     Route: 033

REACTIONS (2)
  - Pneumonia [Unknown]
  - Abdominal pain [Unknown]
